FAERS Safety Report 12934028 (Version 1)
Quarter: 2016Q4

REPORT INFORMATION
  Report Type: Spontaneous
  Country: CN (occurrence: CN)
  Receive Date: 20161111
  Receipt Date: 20161111
  Transmission Date: 20170207
  Serious: Yes (Hospitalization, Other)
  Sender: FDA-Public Use
  Company Number: CN-SA-2016SA204399

PATIENT
  Age: 70 Year
  Sex: Female

DRUGS (9)
  1. ACARBOSE. [Concomitant]
     Active Substance: ACARBOSE
     Indication: DIABETES MELLITUS
     Route: 048
  2. APROVEL [Suspect]
     Active Substance: IRBESARTAN
     Indication: HYPERTENSION
     Route: 048
  3. LANTUS [Suspect]
     Active Substance: INSULIN GLARGINE
     Indication: DIABETES MELLITUS
     Route: 058
     Dates: start: 20161107
  4. APROVEL [Suspect]
     Active Substance: IRBESARTAN
     Indication: HYPERTENSION
     Route: 048
     Dates: start: 2014
  5. APROVEL [Suspect]
     Active Substance: IRBESARTAN
     Indication: HYPERTENSION
     Dosage: TAB OR ? TAB IN THE MORNING, ? AT NIGHT
     Route: 048
     Dates: end: 2016
  6. APROVEL [Suspect]
     Active Substance: IRBESARTAN
     Indication: HYPERTENSION
     Route: 048
     Dates: start: 2013
  7. APROVEL [Suspect]
     Active Substance: IRBESARTAN
     Indication: HYPERTENSION
     Route: 048
     Dates: end: 201512
  8. INSULIN ASPART [Concomitant]
     Active Substance: INSULIN ASPART
     Indication: DIABETES MELLITUS
     Route: 058
     Dates: start: 2000
  9. INSULIN GLARGINE [Concomitant]
     Active Substance: INSULIN GLARGINE
     Indication: DIABETES MELLITUS
     Route: 058
     Dates: start: 2013, end: 201610

REACTIONS (16)
  - Abdominal pain [Recovering/Resolving]
  - Intentional product misuse [Unknown]
  - Arteriosclerosis [Unknown]
  - Pain in extremity [Recovering/Resolving]
  - Glycosylated haemoglobin increased [Unknown]
  - Pain [Recovering/Resolving]
  - Renal atrophy [Unknown]
  - Diabetic nephropathy [Unknown]
  - Blood pressure increased [Recovering/Resolving]
  - Thoracic vertebral fracture [Unknown]
  - Dizziness [Recovering/Resolving]
  - Dysuria [Not Recovered/Not Resolved]
  - Oedema peripheral [Recovering/Resolving]
  - Vomiting projectile [Unknown]
  - Drug dose omission [Unknown]
  - Blood glucose increased [Not Recovered/Not Resolved]

NARRATIVE: CASE EVENT DATE: 2013
